FAERS Safety Report 24282034 (Version 3)
Quarter: 2024Q3

REPORT INFORMATION
  Report Type: Spontaneous
  Country: CA (occurrence: CA)
  Receive Date: 20240904
  Receipt Date: 20240930
  Transmission Date: 20241017
  Serious: Yes (Hospitalization, Other)
  Sender: PFIZER
  Company Number: CA-PFIZER INC-PV202400034818

PATIENT
  Age: 61 Year
  Sex: Male

DRUGS (4)
  1. ELREXFIO [Suspect]
     Active Substance: ELRANATAMAB-BCMM
     Dosage: 12 MG (DOSE 1), 32MG (DOSE 2), 76MG (DOSE 3), THEN 76MG WEEKLY X4 (REPEATS 3)
     Route: 058
     Dates: start: 20240324
  2. ELREXFIO [Suspect]
     Active Substance: ELRANATAMAB-BCMM
     Dosage: 32MG (DOSE 2), 76MG (DOSE 3), THEN 76MG WEEKLY X4 (REPEATS 3)
     Route: 058
     Dates: start: 20240326
  3. ELREXFIO [Suspect]
     Active Substance: ELRANATAMAB-BCMM
     Dosage: 76 MG, WEEKLY
     Route: 058
     Dates: start: 20240423
  4. ELREXFIO [Suspect]
     Active Substance: ELRANATAMAB-BCMM
     Dosage: 76 MG (Q 2 WEEKS X 10 DOSES/(PREVIOUSLY Q WEEKLY)
     Route: 058
     Dates: start: 20240906

REACTIONS (6)
  - Pneumocystis jirovecii pneumonia [Unknown]
  - Cytokine release syndrome [Unknown]
  - Hyperkalaemia [Unknown]
  - Chills [Unknown]
  - Pyrexia [Unknown]
  - Sinusitis [Unknown]

NARRATIVE: CASE EVENT DATE: 20240301
